FAERS Safety Report 5124614-9 (Version None)
Quarter: 2006Q4

REPORT INFORMATION
  Report Type: 
  Country: None (occurrence: None)
  Receive Date: 20061011
  Receipt Date: 20060619
  Transmission Date: 20070319
  Serious: Yes (Other)
  Sender: FDA-Public Use
  Company Number: US-BAYER-200612591BCC

PATIENT
  Age: 61 Year
  Sex: Female
  Weight: 68 kg

DRUGS (6)
  1. ASPIRIN [Suspect]
     Indication: PROPHYLAXIS
     Dosage: TOTAL DAILY DOSE: 325 MG  UNIT DOSE: 325 MG
     Route: 048
     Dates: start: 20060124
  2. LIPITOR [Suspect]
     Indication: DRUG USE FOR UNKNOWN INDICATION
     Dates: end: 20060626
  3. HYZAAR [Concomitant]
  4. GLUCOVANCE [Concomitant]
  5. ALTACE [Concomitant]
  6. COREG [Concomitant]

REACTIONS (4)
  - ABDOMINAL DISTENSION [None]
  - BREAST ENLARGEMENT [None]
  - MYOCARDIAL INFARCTION [None]
  - VAGINAL DISCHARGE [None]
